FAERS Safety Report 5010888-1 (Version None)
Quarter: 2006Q2

REPORT INFORMATION
  Report Type: 
  Country: None (occurrence: None)
  Receive Date: 20060523
  Receipt Date: 20060512
  Transmission Date: 20061013
  Serious: Yes (Other)
  Sender: FDA-Public Use
  Company Number: HQWYE349715MAY06

PATIENT
  Age: 25 Year
  Sex: Female
  Weight: 68.55 kg

DRUGS (2)
  1. EFFEXOR XR [Suspect]
     Indication: GENERALISED ANXIETY DISORDER
     Dosage: 37.5 MG 1X PER 1 DAY, ORAL
     Route: 048
     Dates: start: 20060417, end: 20060417
  2. SYNTHROID [Concomitant]

REACTIONS (3)
  - EYE SWELLING [None]
  - NASAL CONGESTION [None]
  - SWELLING FACE [None]
